FAERS Safety Report 16879869 (Version 1)
Quarter: 2019Q4

REPORT INFORMATION
  Report Type: Report from Study
  Country: RO (occurrence: RO)
  Receive Date: 20191003
  Receipt Date: 20191003
  Transmission Date: 20200122
  Serious: Yes (Hospitalization)
  Sender: FDA-Public Use
  Company Number: RO-EMD SERONO-9120293

PATIENT
  Age: 25 Year
  Sex: Female

DRUGS (1)
  1. REBIF [Suspect]
     Active Substance: INTERFERON BETA-1A
     Indication: RELAPSING-REMITTING MULTIPLE SCLEROSIS
     Route: 058
     Dates: start: 20160927

REACTIONS (4)
  - Cardiac contusion [Unknown]
  - Multiple sclerosis relapse [Recovering/Resolving]
  - C-reactive protein increased [Unknown]
  - Vestibular disorder [Unknown]

NARRATIVE: CASE EVENT DATE: 2019
